FAERS Safety Report 10632557 (Version 1)
Quarter: 2014Q4

REPORT INFORMATION
  Report Type: Spontaneous
  Country: US (occurrence: US)
  Receive Date: 20141205
  Receipt Date: 20141205
  Transmission Date: 20150529
  Serious: No
  Sender: FDA-Public Use
  Company Number: US-BRISTOL-MYERS SQUIBB COMPANY-21482310

PATIENT
  Age: 71 Year
  Sex: Male
  Weight: 136.05 kg

DRUGS (4)
  1. LISINOPRIL. [Concomitant]
     Active Substance: LISINOPRIL
     Indication: BLOOD PRESSURE
  2. CRESTOR [Concomitant]
     Active Substance: ROSUVASTATIN CALCIUM
     Indication: BLOOD CHOLESTEROL
  3. METOPROLOL [Concomitant]
     Active Substance: METOPROLOL
  4. ELIQUIS [Suspect]
     Active Substance: APIXABAN
     Indication: VENTRICULAR EXTRASYSTOLES

REACTIONS (2)
  - Nausea [Unknown]
  - Abdominal discomfort [Not Recovered/Not Resolved]
